FAERS Safety Report 6398745-X (Version None)
Quarter: 2009Q4

REPORT INFORMATION
  Report Type: 
  Country: None (occurrence: None)
  Receive Date: 20091013
  Receipt Date: 20090930
  Transmission Date: 20100525
  Serious: Yes (Other)
  Sender: FDA-Public Use
  Company Number: PHHY2009GB40279

PATIENT
  Sex: Female

DRUGS (4)
  1. CLOZARIL [Suspect]
     Indication: SCHIZOPHRENIA
     Dosage: 350 MG, UNK
     Dates: start: 20090707
  2. CLOZARIL [Suspect]
     Dosage: 275 MG, QD
  3. HYOSCINE HBR HYT [Concomitant]
     Dosage: 300 UG, UNK
     Route: 048
     Dates: start: 20090928
  4. VALPROATE SODIUM [Concomitant]
     Indication: AFFECTIVE DISORDER
     Dosage: 1 G, BID
     Route: 048
     Dates: start: 20090827

REACTIONS (2)
  - AGGRESSION [None]
  - TACHYCARDIA [None]
